FAERS Safety Report 22324289 (Version 2)
Quarter: 2024Q1

REPORT INFORMATION
  Report Type: Spontaneous
  Country: US (occurrence: US)
  Receive Date: 20230516
  Receipt Date: 20240109
  Transmission Date: 20240410
  Serious: No
  Sender: FDA-Public Use
  Company Number: US-Sprout Pharmaceuticals, Inc.-2023SP000127

PATIENT
  Age: 56 Year
  Sex: Female
  Weight: 92.162 kg

DRUGS (1)
  1. ADDYI [Suspect]
     Active Substance: FLIBANSERIN
     Indication: Libido disorder
     Route: 048
     Dates: start: 202304, end: 202304

REACTIONS (6)
  - Hypotension [Recovered/Resolved]
  - Mental impairment [Recovered/Resolved]
  - Feeling abnormal [Recovered/Resolved]
  - Depressed mood [Recovered/Resolved]
  - Malaise [Recovered/Resolved]
  - Product use in unapproved indication [Recovered/Resolved]

NARRATIVE: CASE EVENT DATE: 20230401
